FAERS Safety Report 8861486 (Version 1)
Quarter: 2012Q4

REPORT INFORMATION
  Report Type: 
  Country: US (occurrence: US)
  Receive Date: 20121025
  Receipt Date: 20121025
  Transmission Date: 20130627
  Serious: No
  Sender: FDA-Public Use
  Company Number: US-AMGEN-USASP2012014505

PATIENT
  Age: 69 Year
  Sex: Male

DRUGS (7)
  1. ENBREL [Suspect]
     Indication: PRODUCT USED FOR UNKNOWN INDICATION
     Dosage: 50 mg, qwk
     Route: 058
  2. PLAVIX [Concomitant]
     Dosage: 75 mg, UNK
  3. ZETIA [Concomitant]
     Dosage: 10 mg, UNK
  4. ARTHROTEC [Concomitant]
     Dosage: UNK
  5. SPIRIVA HANDIHALER [Concomitant]
     Dosage: UNK
  6. ADVAIR [Concomitant]
     Dosage: UNK
  7. ASPIRIN BUFFERED [Concomitant]
     Dosage: 325 mg, UNK

REACTIONS (1)
  - Pneumonia [Unknown]
